FAERS Safety Report 12400149 (Version 1)
Quarter: 2016Q2

REPORT INFORMATION
  Report Type: Spontaneous
  Country: US (occurrence: US)
  Receive Date: 20160524
  Receipt Date: 20160524
  Transmission Date: 20160815
  Serious: No
  Sender: FDA-Public Use
  Company Number: US-TEVA-660099USA

PATIENT
  Sex: Female

DRUGS (13)
  1. SERTRALINE [Concomitant]
     Active Substance: SERTRALINE HYDROCHLORIDE
  2. OXYBUTYNIN [Concomitant]
     Active Substance: OXYBUTYNIN
  3. COPAXONE [Suspect]
     Active Substance: GLATIRAMER ACETATE
     Route: 058
     Dates: start: 20140425
  4. HYDROCO/APAP [Concomitant]
     Active Substance: ACETAMINOPHEN\HYDROCODONE
  5. SIMVASTATIN. [Concomitant]
     Active Substance: SIMVASTATIN
  6. ESCITALOPRAM [Concomitant]
     Active Substance: ESCITALOPRAM OXALATE
  7. CELEBREX [Concomitant]
     Active Substance: CELECOXIB
  8. PRILOSEC [Concomitant]
     Active Substance: OMEPRAZOLE MAGNESIUM
  9. LISINOPRIL. [Concomitant]
     Active Substance: LISINOPRIL
  10. CARBAMAZEPIN [Concomitant]
     Active Substance: CARBAMAZEPINE
  11. LISINOPRIL. [Concomitant]
     Active Substance: LISINOPRIL
  12. ZOLPIDEM [Concomitant]
     Active Substance: ZOLPIDEM\ZOLPIDEM TARTRATE
  13. DIAZEPAM. [Concomitant]
     Active Substance: DIAZEPAM

REACTIONS (1)
  - Fall [Unknown]
